FAERS Safety Report 8737647 (Version 2)
Quarter: 2013Q4

REPORT INFORMATION
  Report Type: Spontaneous
  Country: US (occurrence: US)
  Receive Date: 20120822
  Receipt Date: 20131030
  Transmission Date: 20140711
  Serious: No
  Sender: FDA-Public Use
  Company Number: US-009507513-2012SP026921

PATIENT
  Sex: Female

DRUGS (1)
  1. PROVENTIL [Suspect]
     Indication: ASTHMA
     Dosage: 1 OR 2 TIMES A DAY/2 ACTUATIOS EACH TIME
     Dates: start: 2010

REACTIONS (2)
  - Asthma [Unknown]
  - Drug dose omission [Unknown]
